FAERS Safety Report 5848917-5 (Version None)
Quarter: 2008Q3

REPORT INFORMATION
  Report Type: 
  Country: None (occurrence: None)
  Receive Date: 20080819
  Receipt Date: 20080807
  Transmission Date: 20090109
  Serious: Yes (Death, Other)
  Sender: FDA-Public Use
  Company Number: GB-RANBAXY-2008RR-17229

PATIENT

DRUGS (1)
  1. ACETAMINOPHEN [Suspect]
     Dosage: UNK

REACTIONS (2)
  - LIVER INJURY [None]
  - OVERDOSE [None]
